FAERS Safety Report 6432145-9 (Version None)
Quarter: 2009Q4

REPORT INFORMATION
  Report Type: 
  Country: None (occurrence: None)
  Receive Date: 20091105
  Receipt Date: 20091028
  Transmission Date: 20100525
  Serious: Yes (Other)
  Sender: FDA-Public Use
  Company Number: 2009JP006596

PATIENT
  Age: 80 Year
  Sex: Male

DRUGS (2)
  1. VESICARE [Suspect]
     Dosage: 5 MG, /D, ORAL
     Route: 048
     Dates: start: 20081201, end: 20091015
  2. CASODEX [Concomitant]

REACTIONS (1)
  - ALANINE AMINOTRANSFERASE INCREASED [None]
